FAERS Safety Report 7069742-6 (Version None)
Quarter: 2010Q4

REPORT INFORMATION
  Report Type: 
  Country: None (occurrence: None)
  Receive Date: 20101028
  Receipt Date: 20100601
  Transmission Date: 20110411
  Serious: No
  Sender: FDA-Public Use
  Company Number: US-WYE-H14945810

PATIENT
  Sex: Female

DRUGS (1)
  1. ADVIL COLD AND SINUS [Suspect]
     Dosage: UNKNOWN
     Route: 048

REACTIONS (3)
  - GASTRIC HAEMORRHAGE [None]
  - NAUSEA [None]
  - RASH [None]
